FAERS Safety Report 15739123 (Version 1)
Quarter: 2018Q4

REPORT INFORMATION
  Report Type: Report from Study
  Country: IT (occurrence: IT)
  Receive Date: 20181219
  Receipt Date: 20181219
  Transmission Date: 20190205
  Serious: Yes (Other)
  Sender: FDA-Public Use
  Company Number: IT-BAYER-2018-237504

PATIENT
  Age: 30 Year
  Sex: Female

DRUGS (1)
  1. CIPROXIN [Suspect]
     Active Substance: CIPROFLOXACIN
     Indication: PELVIC INFLAMMATORY DISEASE
     Dosage: UNK
     Dates: start: 20181123, end: 20181126

REACTIONS (4)
  - Dyspnoea [Recovering/Resolving]
  - Vertigo [Recovering/Resolving]
  - Malaise [Recovering/Resolving]
  - Dysphagia [Recovering/Resolving]

NARRATIVE: CASE EVENT DATE: 20181126
